FAERS Safety Report 24070729 (Version 1)
Quarter: 2024Q3

REPORT INFORMATION
  Report Type: Spontaneous
  Country: US (occurrence: None)
  Receive Date: 20240709
  Receipt Date: 20240709
  Transmission Date: 20241016
  Serious: Yes (Disabling)
  Sender: Public
  Company Number: None

PATIENT
  Age: 74 Year
  Sex: Female
  Weight: 103.5 kg

DRUGS (15)
  1. LEVOFLOXACIN [Suspect]
     Active Substance: LEVOFLOXACIN
     Indication: Kidney infection
     Dates: start: 20230911, end: 20231007
  2. LEVOFLOXACIN [Suspect]
     Active Substance: LEVOFLOXACIN
     Indication: Sepsis
  3. METFORMIN [Concomitant]
  4. GLIPIZIDE [Concomitant]
     Active Substance: GLIPIZIDE
  5. HYDROCHLOROTHIAZIDE [Concomitant]
  6. LOSARTAN [Concomitant]
  7. JANUVIA [Concomitant]
     Active Substance: SITAGLIPTIN PHOSPHATE
  8. RYBELSUS [Concomitant]
     Active Substance: SEMAGLUTIDE
  9. multivitamin [Concomitant]
  10. ACETAMINOPHEN [Concomitant]
  11. low dose aspirin [Concomitant]
  12. MAGNESIUM [Concomitant]
  13. COENZYME Q10 [Concomitant]
     Active Substance: DIETARY SUPPLEMENT\UBIDECARENONE
  14. turmeric [Concomitant]
  15. PROBIOTICS NOS [Concomitant]
     Active Substance: PROBIOTICS NOS

REACTIONS (2)
  - Arthralgia [None]
  - Tendon rupture [None]

NARRATIVE: CASE EVENT DATE: 20231001
